FAERS Safety Report 5722016-5 (Version None)
Quarter: 2008Q2

REPORT INFORMATION
  Report Type: 
  Country: None (occurrence: None)
  Receive Date: 20080429
  Receipt Date: 20080418
  Transmission Date: 20081010
  Serious: Yes (Hospitalization, Other)
  Sender: FDA-Public Use
  Company Number: AR-PFIZER INC-2008032537

PATIENT
  Age: 65 Year
  Sex: Female

DRUGS (3)
  1. SUTENT [Suspect]
     Indication: RENAL CANCER METASTATIC
     Route: 048
     Dates: start: 20070801, end: 20080408
  2. ANTIHYPERTENSIVES [Concomitant]
     Route: 048
  3. MORPHINE [Concomitant]
     Route: 048

REACTIONS (11)
  - ANAEMIA [None]
  - ASTHENIA [None]
  - BLOOD IRON DECREASED [None]
  - BLOOD POTASSIUM DECREASED [None]
  - BLOOD PRESSURE DECREASED [None]
  - CARDIAC FAILURE [None]
  - DEHYDRATION [None]
  - GENERAL PHYSICAL HEALTH DETERIORATION [None]
  - PULMONARY OEDEMA [None]
  - RESPIRATORY DISORDER [None]
  - VOMITING [None]
